FAERS Safety Report 11401704 (Version 2)
Quarter: 2015Q4

REPORT INFORMATION
  Report Type: Spontaneous
  Country: US (occurrence: US)
  Receive Date: 20150821
  Receipt Date: 20151029
  Transmission Date: 20160304
  Serious: Yes (Other)
  Sender: FDA-Public Use
  Company Number: US-TEVA-587875ACC

PATIENT
  Age: 44 Year
  Sex: Female

DRUGS (1)
  1. PARAGARD T 380A [Suspect]
     Active Substance: COPPER
     Indication: CONTRACEPTION
     Route: 015
     Dates: start: 20090220, end: 20150810

REACTIONS (5)
  - Device breakage [Recovered/Resolved]
  - Medical device complication [Recovered/Resolved]
  - Uterine cervical pain [Unknown]
  - Metrorrhagia [Unknown]
  - Device dislocation [Recovered/Resolved]

NARRATIVE: CASE EVENT DATE: 201508
